FAERS Safety Report 8268922-1 (Version None)
Quarter: 2012Q2

REPORT INFORMATION
  Report Type: 
  Country: None (occurrence: None)
  Receive Date: 20120409
  Receipt Date: 20120329
  Transmission Date: 20120825
  Serious: Yes (Hospitalization)
  Sender: FDA-Public Use
  Company Number: US-JNJFOC-20120400963

PATIENT
  Sex: Male
  Weight: 17.7 kg

DRUGS (9)
  1. METHOTREXATE [Suspect]
     Indication: PRODUCT USED FOR UNKNOWN INDICATION
  2. LANSOPRAZOLE [Concomitant]
  3. OMEPRAZOLE [Concomitant]
  4. PEPTAMEN [Concomitant]
  5. REMICADE [Suspect]
     Indication: INFLAMMATORY BOWEL DISEASE
     Route: 042
     Dates: start: 20110611
  6. MESALAMINE [Suspect]
     Indication: PRODUCT USED FOR UNKNOWN INDICATION
     Route: 048
  7. FOLIC ACID [Concomitant]
  8. MULTI-VITAMINS [Concomitant]
  9. ANTIBIOTICS FOR IBD [Concomitant]

REACTIONS (1)
  - GIARDIASIS [None]
